FAERS Safety Report 7409492-7 (Version None)
Quarter: 2011Q2

REPORT INFORMATION
  Report Type: 
  Country: None (occurrence: None)
  Receive Date: 20110407
  Receipt Date: 20110407
  Transmission Date: 20111010
  Serious: Yes (Hospitalization)
  Sender: FDA-Public Use
  Company Number: None

PATIENT
  Age: 49 Year
  Sex: Male
  Weight: 79 kg

DRUGS (2)
  1. IODIXANOL [Suspect]
     Indication: COMPUTERISED TOMOGRAM
     Dosage: 320 MG ONCE IV
     Route: 042
     Dates: start: 20110131, end: 20110131
  2. IODIXANOL [Suspect]
     Indication: PULMONARY EMBOLISM
     Dosage: 320 MG ONCE IV
     Route: 042
     Dates: start: 20110131, end: 20110131

REACTIONS (2)
  - CONTRAST MEDIA REACTION [None]
  - ANAPHYLACTIC REACTION [None]
